FAERS Safety Report 24383815 (Version 1)
Quarter: 2024Q4

REPORT INFORMATION
  Report Type: Spontaneous
  Country: RO (occurrence: RO)
  Receive Date: 20241001
  Receipt Date: 20241001
  Transmission Date: 20250115
  Serious: Yes (Other)
  Sender: NOVARTIS
  Company Number: RO-002147023-NVSC2024RO189507

PATIENT
  Age: 65 Year
  Sex: Female

DRUGS (2)
  1. KISQALI [Suspect]
     Active Substance: RIBOCICLIB
     Indication: Breast neoplasm
     Dosage: 600 MG, QD, (3X200 MG), 21 DAYS, THEN 7 DAYS PAUSE
     Route: 048
     Dates: start: 20231207
  2. LETROZOLE [Concomitant]
     Active Substance: LETROZOLE
     Indication: Product used for unknown indication
     Dosage: 2.5 MG, QD
     Route: 065
     Dates: start: 20231207

REACTIONS (6)
  - Neutropenia [Not Recovered/Not Resolved]
  - Pseudomonas infection [Unknown]
  - Anaemia [Recovered/Resolved]
  - Anaemia [Unknown]
  - Secretion discharge [Unknown]
  - Staphylococcal infection [Unknown]

NARRATIVE: CASE EVENT DATE: 20231220
